FAERS Safety Report 21395799 (Version 1)
Quarter: 2022Q3

REPORT INFORMATION
  Report Type: Spontaneous
  Country: US (occurrence: US)
  Receive Date: 20220930
  Receipt Date: 20220930
  Transmission Date: 20221026
  Serious: Yes (Other)
  Sender: FDA-Public Use
  Company Number: US-PFIZER INC-PV202200072273

PATIENT
  Age: 30 Year
  Sex: Male

DRUGS (2)
  1. ADRIAMYCIN [Suspect]
     Active Substance: DOXORUBICIN HYDROCHLORIDE
     Indication: Hodgkin^s disease
     Dosage: UNK
  2. ADCETRIS [Suspect]
     Active Substance: BRENTUXIMAB VEDOTIN
     Indication: Hodgkin^s disease
     Dosage: UNK

REACTIONS (2)
  - Pericardial effusion [Unknown]
  - Streptococcal infection [Unknown]
